FAERS Safety Report 8525684-8 (Version None)
Quarter: 2012Q3

REPORT INFORMATION
  Report Type: 
  Country: None (occurrence: None)
  Receive Date: 20120720
  Receipt Date: 20120706
  Transmission Date: 20120928
  Serious: Yes (Other)
  Sender: FDA-Public Use
  Company Number: DE-009507513-1207DEU000619

PATIENT

DRUGS (1)
  1. NUVARING [Suspect]
     Indication: CONTRACEPTION
     Dosage: UNK,
     Route: 067
     Dates: start: 20080101, end: 20110101

REACTIONS (1)
  - CEREBRAL INFARCTION [None]
